FAERS Safety Report 7179140-2 (Version None)
Quarter: 2010Q4

REPORT INFORMATION
  Report Type: 
  Country: None (occurrence: None)
  Receive Date: 20101221
  Receipt Date: 20101214
  Transmission Date: 20110411
  Serious: No
  Sender: FDA-Public Use
  Company Number: US-PFIZER INC-2010137171

PATIENT
  Sex: Female

DRUGS (2)
  1. LYRICA [Suspect]
     Indication: NEUROPATHY PERIPHERAL
     Dosage: UNK
     Route: 048
     Dates: start: 20101019, end: 20101024
  2. LYRICA [Suspect]
     Dosage: UNK
     Dates: end: 20101027

REACTIONS (1)
  - GINGIVAL SWELLING [None]
